FAERS Safety Report 9422755 (Version 1)
Quarter: 2013Q3

REPORT INFORMATION
  Report Type: Spontaneous
  Country: US (occurrence: None)
  Receive Date: 20130724
  Receipt Date: 20130724
  Transmission Date: 20140515
  Serious: Yes (Other)
  Sender: FDA-Public Use
  Company Number: 2013P1012065

PATIENT
  Age: 49 Year
  Sex: Male

DRUGS (1)
  1. BUPROPION [Suspect]
     Route: 055

REACTIONS (4)
  - Hallucination, auditory [None]
  - Intentional drug misuse [None]
  - Insomnia [None]
  - Anger [None]
